FAERS Safety Report 18258103 (Version 1)
Quarter: 2020Q3

REPORT INFORMATION
  Report Type: Report from Study
  Country: JP (occurrence: JP)
  Receive Date: 20200911
  Receipt Date: 20200911
  Transmission Date: 20201103
  Serious: Yes (Hospitalization)
  Sender: FDA-Public Use
  Company Number: JP-ELI_LILLY_AND_COMPANY-JP202008012123

PATIENT
  Age: 28 Year
  Sex: Female
  Weight: 65.2 kg

DRUGS (9)
  1. BARICITINIB [Suspect]
     Active Substance: BARICITINIB
     Indication: SYSTEMIC LUPUS ERYTHEMATOSUS
     Dosage: 4 MG, DAILY
     Route: 048
     Dates: start: 20200406, end: 20200830
  2. BONALON [Concomitant]
     Active Substance: ALENDRONATE SODIUM
     Indication: OSTEOPOROSIS PROPHYLAXIS
     Dosage: 1 DOSAGE FORM, WEEKLY (1/W)
     Route: 048
     Dates: start: 20170306
  3. PLAQUENIL [HYDROXYCHLOROQUINE PHOSPHATE] [Concomitant]
     Active Substance: HYDROXYCHLOROQUINE DIPHOSPHATE
     Indication: SYSTEMIC LUPUS ERYTHEMATOSUS
     Dosage: 1 DOSAGE FORM, QOD
     Route: 048
     Dates: start: 20171002
  4. PLACEBO [Suspect]
     Active Substance: UNSPECIFIED INGREDIENT
     Indication: SYSTEMIC LUPUS ERYTHEMATOSUS
     Dosage: 2 MG, DAILY
     Route: 048
     Dates: start: 20200406, end: 20200830
  5. LOXONIN [Concomitant]
     Active Substance: LOXOPROFEN SODIUM
     Indication: HEADACHE
     Dosage: UNK, PRN
     Route: 048
     Dates: start: 2016
  6. PROGRAF [Concomitant]
     Active Substance: TACROLIMUS
     Dosage: 0.5 MG, DAILY
     Route: 048
     Dates: start: 20170306
  7. PLAQUENIL [HYDROXYCHLOROQUINE PHOSPHATE] [Concomitant]
     Active Substance: HYDROXYCHLOROQUINE DIPHOSPHATE
     Dosage: 2 DOSAGE FORM, QOD
     Route: 048
     Dates: start: 20171002
  8. PROGRAF [Concomitant]
     Active Substance: TACROLIMUS
     Indication: SYSTEMIC LUPUS ERYTHEMATOSUS
     Dosage: 2 MG, DAILY
     Route: 048
     Dates: start: 20170306, end: 202008
  9. PREDNISOLONE. [Concomitant]
     Active Substance: PREDNISOLONE
     Indication: SYSTEMIC LUPUS ERYTHEMATOSUS
     Dosage: 4 DOSAGE FORM, DAILY
     Dates: start: 20200630

REACTIONS (2)
  - Herpes zoster [Not Recovered/Not Resolved]
  - Herpes zoster meningitis [Not Recovered/Not Resolved]

NARRATIVE: CASE EVENT DATE: 20200830
